FAERS Safety Report 5117587-6 (Version None)
Quarter: 2006Q3

REPORT INFORMATION
  Report Type: 
  Country: None (occurrence: None)
  Receive Date: 20060929
  Receipt Date: 20060919
  Transmission Date: 20061208
  Serious: Yes (Hospitalization, Other)
  Sender: FDA-Public Use
  Company Number: US-JNJFOC-20060904634

PATIENT
  Sex: Female
  Weight: 81.65 kg

DRUGS (5)
  1. REMICADE [Suspect]
     Dosage: 10 VIALS
     Route: 042
  2. REMICADE [Suspect]
     Dosage: 5 VIALS
     Route: 042
  3. REMICADE [Suspect]
     Dosage: 5 VIALS
     Route: 042
  4. REMICADE [Suspect]
     Dosage: 5 VIALS
     Route: 042
  5. REMICADE [Suspect]
     Indication: PSORIATIC ARTHROPATHY
     Dosage: 5 VIALS
     Route: 042

REACTIONS (5)
  - ASTHENIA [None]
  - BLOOD POTASSIUM DECREASED [None]
  - DIABETES INSIPIDUS [None]
  - HYPOTENSION [None]
  - RECTAL HAEMORRHAGE [None]
